FAERS Safety Report 11595560 (Version 1)
Quarter: 2015Q4

REPORT INFORMATION
  Report Type: Report from Study
  Country: BR (occurrence: BR)
  Receive Date: 20151006
  Receipt Date: 20151006
  Transmission Date: 20160304
  Serious: Yes (Hospitalization, Other)
  Sender: FDA-Public Use
  Company Number: BR-ROCHE-1525604

PATIENT
  Sex: Female
  Weight: 79 kg

DRUGS (8)
  1. ARCOXIA [Concomitant]
     Active Substance: ETORICOXIB
  2. CLORANA [Concomitant]
     Active Substance: HYDROCHLOROTHIAZIDE
  3. DICLOFENAC SODIUM. [Concomitant]
     Active Substance: DICLOFENAC SODIUM
     Indication: PAIN
  4. ACTEMRA [Suspect]
     Active Substance: TOCILIZUMAB
     Route: 042
     Dates: start: 201501
  5. BENERVA [Concomitant]
     Active Substance: THIAMINE
  6. ACTEMRA [Suspect]
     Active Substance: TOCILIZUMAB
     Indication: RHEUMATOID ARTHRITIS
     Route: 042
     Dates: start: 20140218, end: 201407
  7. METHOTREXATE [Concomitant]
     Active Substance: METHOTREXATE
  8. CAPTOPRIL. [Concomitant]
     Active Substance: CAPTOPRIL
     Indication: HYPERTENSION
     Route: 065

REACTIONS (8)
  - Renal disorder [Recovering/Resolving]
  - Arthropathy [Unknown]
  - Bone erosion [Unknown]
  - Arthralgia [Not Recovered/Not Resolved]
  - Blister [Unknown]
  - Arthralgia [Unknown]
  - Pruritus generalised [Unknown]
  - Erythema [Unknown]
